FAERS Safety Report 20648927 (Version 1)
Quarter: 2022Q1

REPORT INFORMATION
  Report Type: Report from Study
  Country: US (occurrence: US)
  Receive Date: 20220329
  Receipt Date: 20220329
  Transmission Date: 20220424
  Serious: Yes (Death, Other)
  Sender: FDA-Public Use
  Company Number: US-EXELIXIS-XL18422050040

PATIENT
  Age: 40 Year
  Sex: Male
  Weight: 71 kg

DRUGS (7)
  1. IPILIMUMAB [Suspect]
     Active Substance: IPILIMUMAB
     Indication: Non-renal cell carcinoma of kidney
     Dosage: 1 MG/KG (DAY 1 OF CYCLES 1-4)
     Route: 042
     Dates: start: 20210315
  2. NIVOLUMAB [Suspect]
     Active Substance: NIVOLUMAB
     Indication: Non-renal cell carcinoma of kidney
     Dosage: 3 MG/KG (DAY 1 OF CYCLES 1-4)
     Route: 042
     Dates: start: 20210315
  3. NIVOLUMAB [Suspect]
     Active Substance: NIVOLUMAB
     Dosage: 480 MG (DAY 1 OF CYCLE 5 AND ABOVE)
     Route: 042
  4. CABOZANTINIB [Suspect]
     Active Substance: CABOZANTINIB
     Indication: Non-renal cell carcinoma of kidney
     Dosage: 40 MG, QD (CYCLES 1-4 AND 5 AND ABOVE)
     Route: 048
     Dates: start: 20210315
  5. CABOZANTINIB [Suspect]
     Active Substance: CABOZANTINIB
     Dosage: (CYCLE 5 AND ABOVE)
     Route: 048
  6. NIVOLUMAB [Suspect]
     Active Substance: NIVOLUMAB
     Indication: Non-renal cell carcinoma of kidney
     Dosage: 3 MG/KG (DAY 1 OF CYCLES 1-4)
     Route: 042
     Dates: start: 20210315
  7. NIVOLUMAB [Suspect]
     Active Substance: NIVOLUMAB
     Dosage: 480 MG (DAY 1 OF CYCLE 5 AND ABOVE)
     Route: 042

REACTIONS (1)
  - Obstruction gastric [Fatal]
